FAERS Safety Report 5182918-8 (Version None)
Quarter: 2006Q4

REPORT INFORMATION
  Report Type: 
  Country: None (occurrence: None)
  Receive Date: 20061220
  Receipt Date: 20060330
  Transmission Date: 20070319
  Serious: No
  Sender: FDA-Public Use
  Company Number: BR-AVENTIS-200613485GDDC

PATIENT
  Age: 28 Year
  Sex: Female

DRUGS (1)
  1. ARAVA [Suspect]
     Indication: RHEUMATOID ARTHRITIS
     Route: 048
     Dates: start: 20050725, end: 20060314

REACTIONS (2)
  - CAESAREAN SECTION [None]
  - DRUG EXPOSURE DURING PREGNANCY [None]
